FAERS Safety Report 9054750 (Version 4)
Quarter: 2013Q1

REPORT INFORMATION
  Report Type: Spontaneous
  Country: US (occurrence: US)
  Receive Date: 20130208
  Receipt Date: 20130326
  Transmission Date: 20140127
  Serious: Yes (Other)
  Sender: FDA-Public Use
  Company Number: US-PFIZER INC-2013042208

PATIENT
  Age: 77 Year
  Sex: Female
  Weight: 81.63 kg

DRUGS (1)
  1. GLUCOTROL XL [Suspect]
     Indication: DIABETES MELLITUS
     Dosage: 5 MG, 2X/DAY
     Route: 048

REACTIONS (7)
  - Back disorder [Unknown]
  - Blood glucose increased [Recovered/Resolved]
  - Arthralgia [Unknown]
  - Back pain [Unknown]
  - Drug administration error [Unknown]
  - Nervousness [Unknown]
  - Emotional disorder [Unknown]
